FAERS Safety Report 9194112 (Version 1)
Quarter: 2013Q1

REPORT INFORMATION
  Report Type: Other
  Country: GB (occurrence: GB)
  Receive Date: 20130327
  Receipt Date: 20130327
  Transmission Date: 20140127
  Serious: Yes (Hospitalization, Disabling)
  Sender: FDA-Public Use
  Company Number: GB-WATSON-2013-05201

PATIENT
  Age: 73 Year
  Sex: Male

DRUGS (1)
  1. IBUPROFEN (UNKNOWN) [Suspect]
     Indication: MYALGIA
     Dosage: UNK
     Route: 048
     Dates: end: 20121101

REACTIONS (5)
  - Tubulointerstitial nephritis [Recovered/Resolved]
  - Myalgia [Recovered/Resolved]
  - Decreased appetite [Recovered/Resolved]
  - Gout [Recovered/Resolved]
  - Hypophagia [Recovered/Resolved]
